FAERS Safety Report 24355300 (Version 1)
Quarter: 2024Q3

REPORT INFORMATION
  Report Type: Spontaneous
  Country: GB (occurrence: GB)
  Receive Date: 20240924
  Receipt Date: 20240924
  Transmission Date: 20241016
  Serious: Yes (Hospitalization)
  Sender: NOVO NORDISK
  Company Number: GB-NOVOPROD-1283260

PATIENT
  Age: 26 Year
  Sex: Female

DRUGS (2)
  1. OZEMPIC [Suspect]
     Active Substance: SEMAGLUTIDE
     Indication: Weight control
     Dosage: LOWER DOSAGE
  2. OZEMPIC [Suspect]
     Active Substance: SEMAGLUTIDE
     Dosage: HIGHER DOSAGE

REACTIONS (7)
  - Seizure [Unknown]
  - Dehydration [Unknown]
  - Vomiting [Unknown]
  - Pallor [Unknown]
  - Weight decreased [Unknown]
  - Product use in unapproved indication [Unknown]
  - Inappropriate schedule of product administration [Unknown]
